FAERS Safety Report 8673333 (Version 4)
Quarter: 2013Q2

REPORT INFORMATION
  Report Type: Report from Study
  Country: KR (occurrence: KR)
  Receive Date: 20120719
  Receipt Date: 20130612
  Transmission Date: 20140414
  Serious: Yes (Hospitalization)
  Sender: FDA-Public Use
  Company Number: PHHO2012KR010493

PATIENT
  Age: 31 Year
  Sex: Female
  Weight: 48.2 kg

DRUGS (19)
  1. NEORAL [Suspect]
     Indication: RENAL TRANSPLANT
     Dosage: 100 MG, BID
     Route: 048
     Dates: start: 20120707, end: 20121105
  2. EVEROLIMUS [Suspect]
     Indication: RENAL TRANSPLANT
     Dosage: 1.5 MG, BID
     Route: 048
     Dates: start: 20120713
  3. MYFORTIC [Concomitant]
     Indication: RENAL TRANSPLANT
     Dosage: 540 MG, BID
     Route: 048
     Dates: start: 20120710
  4. PROGRAF [Concomitant]
     Dosage: UNK
     Dates: start: 20121106
  5. UNASYN [Concomitant]
     Indication: PROPHYLAXIS
     Dosage: 750 MG, TID
     Route: 042
     Dates: start: 20120709
  6. HUMULIN R [Concomitant]
     Indication: DIABETES MELLITUS
     Dosage: 100 IU, QD
     Route: 058
     Dates: start: 20120709
  7. MUCOPECT [Concomitant]
     Indication: PROPHYLAXIS
     Dosage: 45 MG, TID
     Route: 042
     Dates: start: 20120709
  8. RANITIDINE HYDROCHLORIDE [Concomitant]
     Indication: PROPHYLAXIS
     Dosage: 100 MG, BID
     Route: 042
     Dates: start: 20120709
  9. ISOKET RETARD [Concomitant]
     Indication: AUTONOMIC NERVOUS SYSTEM IMBALANCE
     Dosage: 120 MG, QD
     Route: 048
     Dates: start: 20120727
  10. TRIDOL [Concomitant]
     Indication: PAIN IN EXTREMITY
     Dosage: 150 MG, TID
     Route: 048
     Dates: start: 20120718
  11. ULCERLMIN [Concomitant]
     Indication: DYSPEPSIA
     Dosage: 60 ML, QID
     Route: 048
     Dates: start: 20120709
  12. ULCERLMIN [Concomitant]
     Dosage: 15 MG, QD
     Route: 048
     Dates: start: 20121031
  13. NORVASC [Concomitant]
     Indication: HYPERTENSION
     Dosage: 10 MG, QD
     Route: 048
     Dates: start: 20120708
  14. SYNTHROID [Concomitant]
     Indication: HYPOTHYROIDISM
     Dosage: 100 MG, QD
     Route: 048
  15. METHYLON//METHYLPREDNISOLONE [Concomitant]
     Indication: RENAL TRANSPLANT
     Dosage: 6 MG, QD
     Route: 048
     Dates: start: 20120709
  16. VELORIN [Concomitant]
     Indication: HYPERCHOLESTEROLAEMIA
     Dosage: 100 UG, QD
     Route: 048
     Dates: start: 20120806
  17. SEPTRIN [Concomitant]
     Dosage: 1 DF, QD
     Route: 048
     Dates: start: 20120712
  18. LANTUS [Concomitant]
     Indication: DIABETES MELLITUS
     Dosage: UNK
     Dates: start: 20120717
  19. APIDRA [Concomitant]
     Indication: DIABETES MELLITUS
     Dosage: UNK
     Dates: start: 20120715

REACTIONS (1)
  - Vomiting [Recovered/Resolved]
